FAERS Safety Report 9702983 (Version 1)
Quarter: 2013Q4

REPORT INFORMATION
  Report Type: Spontaneous
  Country: US (occurrence: US)
  Receive Date: 20131122
  Receipt Date: 20131122
  Transmission Date: 20140711
  Serious: No
  Sender: FDA-Public Use
  Company Number: 2013SP003005

PATIENT
  Sex: Male

DRUGS (6)
  1. ADENOSINE [Suspect]
     Indication: ARRHYTHMIA
     Route: 040
  2. ADENOSINE [Suspect]
     Route: 040
  3. ADENOSINE [Suspect]
     Indication: ARRHYTHMIA
     Route: 040
  4. ADENOSINE [Suspect]
     Route: 040
  5. ADENOSINE [Suspect]
     Indication: ARRHYTHMIA
     Route: 040
  6. ADENOSINE [Suspect]
     Route: 040

REACTIONS (1)
  - Bronchospasm [Recovered/Resolved]
